FAERS Safety Report 22103485 (Version 3)
Quarter: 2023Q1

REPORT INFORMATION
  Report Type: Report from Study
  Country: US (occurrence: US)
  Receive Date: 20230316
  Receipt Date: 20230331
  Transmission Date: 20230418
  Serious: Yes (Hospitalization, Other)
  Sender: FDA-Public Use
  Company Number: US-JNJFOC-20230328074

PATIENT
  Age: 66 Year
  Sex: Male

DRUGS (1)
  1. SPRAVATO [Suspect]
     Active Substance: ESKETAMINE
     Indication: Product used for unknown indication
     Dosage: RECEIVED ON 09-MAR-2023 OR 10-MAR-2023
     Dates: start: 20230308

REACTIONS (7)
  - Thyroid cancer metastatic [Recovering/Resolving]
  - Chest pain [Unknown]
  - Gallbladder disorder [Unknown]
  - Memory impairment [Unknown]
  - Chills [Unknown]
  - Confusional state [Unknown]
  - Depression [Unknown]

NARRATIVE: CASE EVENT DATE: 20230301
